FAERS Safety Report 10359036 (Version 3)
Quarter: 2015Q4

REPORT INFORMATION
  Report Type: Report from Study
  Country: US (occurrence: US)
  Receive Date: 20140804
  Receipt Date: 20151107
  Transmission Date: 20160304
  Serious: Yes (Other)
  Sender: FDA-Public Use
  Company Number: US-BRISTOL-MYERS SQUIBB COMPANY-21242805

PATIENT
  Age: 0 Day
  Sex: Male
  Weight: 2.77 kg

DRUGS (4)
  1. NORVIR [Concomitant]
     Active Substance: RITONAVIR
     Indication: PRODUCT USED FOR UNKNOWN INDICATION
     Dosage: 100 MG, QD
     Route: 064
     Dates: start: 20131209
  2. TRUVADA [Concomitant]
     Active Substance: EMTRICITABINE\TENOFOVIR DISOPROXIL FUMARATE
     Indication: PRODUCT USED FOR UNKNOWN INDICATION
     Dosage: 500 MG, QD
     Route: 064
     Dates: start: 20131209
  3. ATAZANAVIR SULFATE [Suspect]
     Active Substance: ATAZANAVIR SULFATE
     Indication: PRODUCT USED FOR UNKNOWN INDICATION
     Dosage: 300 MG, QD
     Route: 064
     Dates: start: 20131209
  4. ATRIPLA [Concomitant]
     Active Substance: EFAVIRENZ\EMTRICITABINE\TENOFOVIR DISOPROXIL FUMARATE
     Indication: PRODUCT USED FOR UNKNOWN INDICATION
     Dosage: 1100 MG, QD
     Route: 064
     Dates: end: 20131209

REACTIONS (3)
  - Foetal exposure during pregnancy [Unknown]
  - Premature baby [Unknown]
  - Polydactyly [Unknown]

NARRATIVE: CASE EVENT DATE: 20140710
